FAERS Safety Report 25257649 (Version 1)
Quarter: 2025Q2

REPORT INFORMATION
  Report Type: Spontaneous
  Country: US (occurrence: US)
  Receive Date: 20250430
  Receipt Date: 20250430
  Transmission Date: 20250716
  Serious: No
  Sender: Thea Pharma
  Company Number: US-THEA-2024000667

PATIENT
  Age: 68 Year
  Sex: Male

DRUGS (1)
  1. BETIMOL [Suspect]
     Active Substance: TIMOLOL
     Indication: Glaucoma
     Dosage: IN RIGHT EYE
     Route: 047

REACTIONS (5)
  - Eye inflammation [Unknown]
  - Eyelid pain [Unknown]
  - Ocular hyperaemia [Unknown]
  - Vision blurred [Unknown]
  - Eye discharge [Unknown]
